FAERS Safety Report 12972143 (Version 1)
Quarter: 2016Q4

REPORT INFORMATION
  Report Type: Spontaneous
  Country: US (occurrence: US)
  Receive Date: 20161124
  Receipt Date: 20161124
  Transmission Date: 20170207
  Serious: No
  Sender: FDA-Public Use
  Company Number: US-ALVOGEN-2016-ALVOGEN-025325

PATIENT
  Age: 65 Year
  Sex: Male

DRUGS (9)
  1. DILTIAZEM. [Concomitant]
     Active Substance: DILTIAZEM
  2. FUROSEMIDE. [Concomitant]
     Active Substance: FUROSEMIDE
  3. LISINOPRIL. [Suspect]
     Active Substance: LISINOPRIL
     Indication: PRODUCT USED FOR UNKNOWN INDICATION
     Dates: start: 201605, end: 20160608
  4. ATORVASTATIN [Concomitant]
     Active Substance: ATORVASTATIN
  5. PANTOPRAZOLE [Concomitant]
     Active Substance: PANTOPRAZOLE SODIUM
  6. LISINOPRIL. [Suspect]
     Active Substance: LISINOPRIL
     Indication: PRODUCT USED FOR UNKNOWN INDICATION
     Dates: start: 201604
  7. METOPROLOL. [Concomitant]
     Active Substance: METOPROLOL
  8. RIVAROXABAN [Concomitant]
     Active Substance: RIVAROXABAN
  9. POTASSIUM CHLORIDE. [Concomitant]
     Active Substance: POTASSIUM CHLORIDE

REACTIONS (1)
  - Throat irritation [Recovered/Resolved]

NARRATIVE: CASE EVENT DATE: 201604
